FAERS Safety Report 19255434 (Version 2)
Quarter: 2021Q2

REPORT INFORMATION
  Report Type: Report from Study
  Country: None (occurrence: US)
  Receive Date: 20210514
  Receipt Date: 20210609
  Transmission Date: 20210717
  Serious: Yes (Other)
  Sender: FDA-Public Use
  Company Number: US-ABBVIE-21K-163-3899809-00

PATIENT
  Sex: Female

DRUGS (1)
  1. HUMIRA [Suspect]
     Active Substance: ADALIMUMAB
     Indication: PSORIATIC ARTHROPATHY
     Dosage: CITRATE FREE
     Route: 058

REACTIONS (7)
  - Cholelithiasis [Recovering/Resolving]
  - Gastric operation [Recovering/Resolving]
  - Migraine [Recovering/Resolving]
  - Postoperative adhesion [Unknown]
  - Fibromyalgia [Recovering/Resolving]
  - Postoperative abscess [Recovering/Resolving]
  - Gastric bypass [Unknown]

NARRATIVE: CASE EVENT DATE: 1998
